FAERS Safety Report 21407498 (Version 1)
Quarter: 2022Q4

REPORT INFORMATION
  Report Type: Spontaneous
  Country: US (occurrence: US)
  Receive Date: 20221004
  Receipt Date: 20221004
  Transmission Date: 20230113
  Serious: No
  Sender: FDA-Public Use
  Company Number: US-drreddys-LIT/USA/22/0155191

PATIENT
  Age: 71 Year
  Sex: Male

DRUGS (15)
  1. GUAIFENESIN [Suspect]
     Active Substance: GUAIFENESIN
     Indication: Asthma
  2. GUAIFENESIN [Suspect]
     Active Substance: GUAIFENESIN
     Indication: Nasal polyps
  3. TIOTROPIUM BROMIDE [Suspect]
     Active Substance: TIOTROPIUM BROMIDE
     Indication: Asthma
  4. TIOTROPIUM BROMIDE [Suspect]
     Active Substance: TIOTROPIUM BROMIDE
     Indication: Nasal polyps
  5. MOMETASONE [Suspect]
     Active Substance: MOMETASONE
     Indication: Asthma
     Route: 055
  6. MOMETASONE [Suspect]
     Active Substance: MOMETASONE
     Indication: Nasal polyps
  7. NIVOLUMAB [Concomitant]
     Active Substance: NIVOLUMAB
     Indication: Adjuvant therapy
     Dosage: 480 MG MONTHLY
     Route: 042
  8. NIVOLUMAB [Concomitant]
     Active Substance: NIVOLUMAB
     Dosage: 20 CYCLES, 25TH CYCLE, 24TH CYCLE, 37 CYCLE
  9. NIVOLUMAB [Concomitant]
     Active Substance: NIVOLUMAB
  10. PREDNISONE [Concomitant]
     Active Substance: PREDNISONE
     Indication: Cough
  11. PREDNISONE [Concomitant]
     Active Substance: PREDNISONE
     Indication: Dyspnoea
  12. AMOXICILLIN\CLAVULANATE POTASSIUM [Concomitant]
     Active Substance: AMOXICILLIN\CLAVULANATE POTASSIUM
     Indication: Cough
  13. AMOXICILLIN\CLAVULANATE POTASSIUM [Concomitant]
     Active Substance: AMOXICILLIN\CLAVULANATE POTASSIUM
     Indication: Dyspnoea
  14. FLUTICASONE [Concomitant]
     Active Substance: FLUTICASONE
     Indication: Cough
  15. FLUTICASONE [Concomitant]
     Active Substance: FLUTICASONE
     Indication: Dyspnoea

REACTIONS (1)
  - Drug ineffective for unapproved indication [Unknown]
